FAERS Safety Report 24012416 (Version 3)
Quarter: 2024Q3

REPORT INFORMATION
  Report Type: Spontaneous
  Country: JP (occurrence: JP)
  Receive Date: 20240625
  Receipt Date: 20240822
  Transmission Date: 20241016
  Serious: Yes (Other)
  Sender: NOVARTIS
  Company Number: JP-002147023-NVSJ2024JP007535

PATIENT
  Sex: Female
  Weight: 78.5 kg

DRUGS (3)
  1. KESIMPTA [Suspect]
     Active Substance: OFATUMUMAB
     Indication: Relapsing-remitting multiple sclerosis
     Dosage: 20 MG
     Route: 058
     Dates: start: 20220530, end: 20240205
  2. KESIMPTA [Suspect]
     Active Substance: OFATUMUMAB
     Dosage: 20 MG
     Route: 058
     Dates: start: 20240530, end: 20240530
  3. URSO [Suspect]
     Active Substance: URSODIOL
     Indication: Hepatic enzyme increased
     Dosage: 100 MG, TID
     Route: 048
     Dates: start: 20240520

REACTIONS (3)
  - Ectopic pregnancy [Unknown]
  - Hepatic enzyme increased [Recovered/Resolved]
  - Maternal exposure during pregnancy [Unknown]
